FAERS Safety Report 8403192-2 (Version None)
Quarter: 2012Q2

REPORT INFORMATION
  Report Type: 
  Country: None (occurrence: None)
  Receive Date: 20120323
  Receipt Date: 20120323
  Transmission Date: 20120825
  Serious: Yes (Other)
  Sender: FDA-Public Use
  Company Number: 163-21880-11040986

PATIENT
  Age: 86 Year
  Sex: Female

DRUGS (2)
  1. REVLIMID [Suspect]
     Indication: MULTIPLE MYELOMA
     Dosage: 5 MG, ONCE DAILY X 3 WEEKS/OFF 1 WEEK, PO
     Route: 048
  2. REVLIMID [Suspect]
     Indication: MULTIPLE MYELOMA
     Dosage: 5 MG, ONCE DAILY X 3 WEEKS/OFF 1 WEEK, PO
     Route: 048
     Dates: start: 20110310

REACTIONS (7)
  - FATIGUE [None]
  - FALL [None]
  - NASAL CONGESTION [None]
  - ECCHYMOSIS [None]
  - OEDEMA PERIPHERAL [None]
  - DYSPNOEA [None]
  - JOINT SWELLING [None]
